FAERS Safety Report 7459842-0 (Version None)
Quarter: 2011Q2

REPORT INFORMATION
  Report Type: 
  Country: None (occurrence: None)
  Receive Date: 20110427
  Receipt Date: 20110413
  Transmission Date: 20111010
  Serious: Yes (Hospitalization)
  Sender: FDA-Public Use
  Company Number: AE-2011-172

PATIENT
  Age: 67 Year
  Sex: Female

DRUGS (19)
  1. ROHYPNOL [Concomitant]
  2. OMLESARTAN/AMLODIPINE [Concomitant]
  3. AKTIFFERIN [Concomitant]
  4. THROMBOASPILETS [Concomitant]
  5. DULCOLAX [Concomitant]
  6. PASPERTIN [Concomitant]
  7. NOMEXOR [Concomitant]
  8. ACC (ACETYLCYSTE [Concomitant]
  9. PRIALT [Suspect]
     Indication: PAIN
     Dosage: 0.05-0.075 UG/HR
     Dates: start: 20090921
  10. CLONIDINE [Suspect]
     Indication: PAIN
     Dosage: 4.24 UG/HR
     Dates: start: 20101104
  11. TEMGESIC [Concomitant]
  12. TRANSTEC [Concomitant]
  13. NOVOMIX [Concomitant]
  14. LASIX [Concomitant]
  15. MOVIPREP [Concomitant]
  16. PREGABALIN [Concomitant]
  17. GLUCOPHAGE [Concomitant]
  18. PANTOLOC [Concomitant]
  19. PROSPAN [Concomitant]

REACTIONS (2)
  - GENERAL PHYSICAL HEALTH DETERIORATION [None]
  - URINARY TRACT INFECTION [None]
